FAERS Safety Report 10268319 (Version 13)
Quarter: 2015Q1

REPORT INFORMATION
  Report Type: Report from Study
  Country: CN (occurrence: CN)
  Receive Date: 20140630
  Receipt Date: 20150213
  Transmission Date: 20150720
  Serious: Yes (Hospitalization, Other)
  Sender: FDA-Public Use
  Company Number: CN-GLAXOSMITHKLINE-B0997559A

PATIENT
  Age: 19 Year
  Sex: Female
  Weight: 39.6 kg

DRUGS (2)
  1. BELIMUMAB [Suspect]
     Active Substance: BELIMUMAB
     Indication: SYSTEMIC LUPUS ERYTHEMATOSUS
     Route: 061
     Dates: start: 20130327
  2. PYRAZINAMIDE. [Concomitant]
     Active Substance: PYRAZINAMIDE

REACTIONS (1)
  - Cutaneous tuberculosis [Recovering/Resolving]

NARRATIVE: CASE EVENT DATE: 20140509
